FAERS Safety Report 25554920 (Version 1)
Quarter: 2025Q3

REPORT INFORMATION
  Report Type: Spontaneous
  Country: US (occurrence: US)
  Receive Date: 20250715
  Receipt Date: 20250715
  Transmission Date: 20251021
  Serious: No
  Sender: PFIZER
  Company Number: US-PFIZER INC-202500127039

PATIENT
  Age: 71 Year
  Sex: Female

DRUGS (2)
  1. BRAFTOVI [Suspect]
     Active Substance: ENCORAFENIB
     Dosage: 75MG/CAP, TAKE 6 CAPSULES DAILY, TAKE WITH OR WITHOUT FOOD. SWALLOW WHOLE
     Route: 048
  2. MEKTOVI [Suspect]
     Active Substance: BINIMETINIB
     Dosage: 15MG/TAB, TAKE 3 TABLETS TWO TIMES A DAY, SWALLOW WHOLE WITH OR WITHOUT FOOD
     Route: 048

REACTIONS (1)
  - Illness [Unknown]
